FAERS Safety Report 14132769 (Version 1)
Quarter: 2017Q4

REPORT INFORMATION
  Report Type: Spontaneous
  Country: US (occurrence: US)
  Receive Date: 20171027
  Receipt Date: 20171027
  Transmission Date: 20180321
  Serious: No
  Sender: FDA-Public Use
  Company Number: US-ORCHID HEALTHCARE-2031651

PATIENT
  Sex: Female
  Weight: 59.09 kg

DRUGS (5)
  1. UNSPECIFIED VITAMIN SUPPLEMENTS [Concomitant]
     Route: 065
  2. LEVOTHYROXINE. [Concomitant]
     Active Substance: LEVOTHYROXINE
     Route: 065
  3. MODAFINIL. [Suspect]
     Active Substance: MODAFINIL
     Route: 065
  4. BUPROPION. [Concomitant]
     Active Substance: BUPROPION
     Route: 065
  5. ALENDRONATE [Concomitant]
     Active Substance: ALENDRONATE SODIUM
     Route: 065

REACTIONS (2)
  - Drug ineffective [Not Recovered/Not Resolved]
  - Product substitution issue [Unknown]
